FAERS Safety Report 6901594-4 (Version None)
Quarter: 2010Q3

REPORT INFORMATION
  Report Type: 
  Country: None (occurrence: None)
  Receive Date: 20100803
  Receipt Date: 20100723
  Transmission Date: 20110219
  Serious: Yes (Hospitalization)
  Sender: FDA-Public Use
  Company Number: US-BAXTER-2010BH020582

PATIENT
  Age: 62 Year
  Sex: Male

DRUGS (2)
  1. DIANEAL [Suspect]
     Indication: PERITONEAL DIALYSIS
     Route: 033
     Dates: start: 20100422, end: 20100424
  2. DIANEAL [Suspect]
     Route: 033
     Dates: start: 20100430

REACTIONS (2)
  - CARDIAC FAILURE CONGESTIVE [None]
  - CONSTIPATION [None]
